FAERS Safety Report 7784881-X (Version None)
Quarter: 2011Q3

REPORT INFORMATION
  Report Type: 
  Country: None (occurrence: None)
  Receive Date: 20110928
  Receipt Date: 20110920
  Transmission Date: 20111222
  Serious: Yes (Other)
  Sender: FDA-Public Use
  Company Number: RU-BAYER-2011-088001

PATIENT
  Age: 51 Year
  Sex: Female

DRUGS (1)
  1. ANGELIQ [Suspect]
     Indication: PRODUCT USED FOR UNKNOWN INDICATION
     Dosage: UNK
     Dates: start: 20090101

REACTIONS (2)
  - CANDIDIASIS [None]
  - HEPATIC PAIN [None]
